FAERS Safety Report 5580529-3 (Version None)
Quarter: 2007Q4

REPORT INFORMATION
  Report Type: 
  Country: None (occurrence: None)
  Receive Date: 20071231
  Receipt Date: 20071231
  Transmission Date: 20080405
  Serious: No
  Sender: FDA-Public Use
  Company Number: None

PATIENT
  Age: 57 Year
  Sex: Male

DRUGS (1)
  1. INTERFERON ALFA-2B [Suspect]
     Indication: HEPATITIS C
     Dosage: 120MG  QWEEK  SQ
     Route: 058
     Dates: start: 20070621, end: 20070727

REACTIONS (2)
  - BLISTER INFECTED [None]
  - ERYTHEMA MULTIFORME [None]
